FAERS Safety Report 9531261 (Version 1)
Quarter: 2013Q2

REPORT INFORMATION
  Report Type: Spontaneous
  Country: US (occurrence: None)
  Receive Date: 20130419
  Receipt Date: 20130419
  Transmission Date: 20140414
  Serious: No
  Sender: FDA-Public Use
  Company Number: FK201300103

PATIENT
  Age: 74 Year
  Sex: Male
  Weight: 79.5 kg

DRUGS (2)
  1. HEPARIN SODIUM INJECTION, USP (HEPARIN SODIUM) (HEPARIN SODIUM) [Suspect]
     Dosage: 32000 USP UNITS 1 IN 1
     Dates: start: 20130103, end: 20130103
  2. PROTAMINE (PROTAMINE) [Concomitant]

REACTIONS (1)
  - Drug effect decreased [None]
